FAERS Safety Report 17011800 (Version 1)
Quarter: 2019Q4

REPORT INFORMATION
  Report Type: Spontaneous
  Country: FR (occurrence: FR)
  Receive Date: 20191108
  Receipt Date: 20191108
  Transmission Date: 20200122
  Serious: Yes (Hospitalization)
  Sender: FDA-Public Use
  Company Number: FR-MYLANLABS-2019M1106939

PATIENT
  Age: 86 Year
  Sex: Female

DRUGS (9)
  1. STRUCTOFLEX [Concomitant]
     Active Substance: GLUCOSAMINE
     Dosage: UNK
  2. STRESAM [Suspect]
     Active Substance: ETIFOXINE
     Indication: DEPRESSION
     Route: 048
     Dates: end: 201411
  3. NOCTAMIDE [Suspect]
     Active Substance: LORMETAZEPAM
     Indication: INSOMNIA
     Dosage: 1 DOSAGE FORM, QD
     Route: 048
     Dates: end: 201411
  4. AMLOR [Concomitant]
     Active Substance: AMLODIPINE BESYLATE
     Dosage: UNK
  5. VENLAFAXINE [Suspect]
     Active Substance: VENLAFAXINE HYDROCHLORIDE
     Indication: DEPRESSION
     Dosage: 37.5 MILLIGRAM, QD
     Route: 048
     Dates: end: 201411
  6. KLIPAL CODEINE [Suspect]
     Active Substance: ACETAMINOPHEN\CODEINE PHOSPHATE
     Indication: PAIN
     Dosage: 1 DOSAGE FORM, QD
     Route: 048
     Dates: end: 201411
  7. NASONEX [Concomitant]
     Active Substance: MOMETASONE FUROATE
     Dosage: UNK
  8. CRESTOR [Concomitant]
     Active Substance: ROSUVASTATIN CALCIUM
     Dosage: UNK
  9. KARDEGIC [Concomitant]
     Active Substance: ASPIRIN DL-LYSINE
     Dosage: UNK

REACTIONS (3)
  - Fall [Recovered/Resolved]
  - Cognitive disorder [Recovered/Resolved]
  - Persecutory delusion [Recovered/Resolved]

NARRATIVE: CASE EVENT DATE: 20141120
